FAERS Safety Report 18335152 (Version 4)
Quarter: 2020Q4

REPORT INFORMATION
  Report Type: Spontaneous
  Country: US (occurrence: US)
  Receive Date: 20201001
  Receipt Date: 20201215
  Transmission Date: 20210113
  Serious: Yes (Other)
  Sender: FDA-Public Use
  Company Number: US-PFIZER INC-00H-163-0094917-00

PATIENT
  Age: 72 Year
  Sex: Female
  Weight: 44 kg

DRUGS (3)
  1. DEMEROL [Suspect]
     Active Substance: MEPERIDINE HYDROCHLORIDE
     Indication: PAIN MANAGEMENT
     Dosage: TOTAL OF 250 MG (DURING THE FIRST 2 DAYS OF HOSPITALIZATION)
     Route: 042
     Dates: start: 19990101
  2. CALCIUM CARBONATE. [Concomitant]
     Active Substance: CALCIUM CARBONATE
     Dosage: UNK
  3. DEMEROL [Suspect]
     Active Substance: MEPERIDINE HYDROCHLORIDE
     Indication: PAIN MANAGEMENT
     Dosage: TOTAL OF 600 MG (DURING THE FIRST 2 DAYS OF HOSPITALIZATION)
     Route: 048

REACTIONS (3)
  - Muscle contractions involuntary [Recovered/Resolved]
  - Neurotoxicity [Unknown]
  - Generalised tonic-clonic seizure [Recovered/Resolved]

NARRATIVE: CASE EVENT DATE: 19990101
